FAERS Safety Report 17907274 (Version 2)
Quarter: 2020Q3

REPORT INFORMATION
  Report Type: Spontaneous
  Country: CO (occurrence: CO)
  Receive Date: 20200617
  Receipt Date: 20200806
  Transmission Date: 20201103
  Serious: Yes (Other)
  Sender: FDA-Public Use
  Company Number: CO-ROCHE-2623975

PATIENT
  Age: 18 Year
  Sex: Male

DRUGS (4)
  1. XOLAIR [Suspect]
     Active Substance: OMALIZUMAB
     Route: 030
     Dates: start: 202001
  2. MONTELUKAST [Suspect]
     Active Substance: MONTELUKAST SODIUM
     Indication: ASTHMA
     Route: 048
  3. XOLAIR [Suspect]
     Active Substance: OMALIZUMAB
     Indication: ASTHMA
     Route: 030
  4. OLOPATADINE. [Concomitant]
     Active Substance: OLOPATADINE
     Indication: PRODUCT USED FOR UNKNOWN INDICATION
     Dosage: INHALER

REACTIONS (5)
  - Dyspnoea [Unknown]
  - Intentional product use issue [Unknown]
  - Off label use [Unknown]
  - Glaucoma [Unknown]
  - Intraocular pressure increased [Unknown]
